FAERS Safety Report 6404229-2 (Version None)
Quarter: 2009Q4

REPORT INFORMATION
  Report Type: 
  Country: None (occurrence: None)
  Receive Date: 20091016
  Receipt Date: 20091005
  Transmission Date: 20100525
  Serious: Yes (Hospitalization, Other)
  Sender: FDA-Public Use
  Company Number: DE-PFIZER INC-2009261184

PATIENT
  Age: 39 Year

DRUGS (2)
  1. LYRICA [Suspect]
     Indication: PARTIAL SEIZURES
     Dosage: UNK
     Route: 048
  2. KEPPRA [Concomitant]
     Indication: PARTIAL SEIZURES
     Dosage: 1000 MG, 1X/DAY
     Route: 048

REACTIONS (6)
  - ALTERED STATE OF CONSCIOUSNESS [None]
  - ARRHYTHMIA [None]
  - CARDIAC ARREST [None]
  - CONVULSION [None]
  - EPILEPSY [None]
  - SYNCOPE [None]
